FAERS Safety Report 6850010-X (Version None)
Quarter: 2010Q3

REPORT INFORMATION
  Report Type: 
  Country: None (occurrence: None)
  Receive Date: 20100716
  Receipt Date: 20071010
  Transmission Date: 20110219
  Serious: No
  Sender: FDA-Public Use
  Company Number: US-PFIZER INC-2007085992

PATIENT
  Sex: Male
  Weight: 77.3 kg

DRUGS (3)
  1. CHANTIX [Suspect]
     Indication: SMOKING CESSATION THERAPY
     Dates: start: 20070927
  2. VITAMINS [Concomitant]
  3. TYLENOL [Concomitant]
     Indication: ARTHRITIS

REACTIONS (3)
  - APATHY [None]
  - DEPRESSION [None]
  - NERVOUSNESS [None]
